FAERS Safety Report 22126688 (Version 3)
Quarter: 2023Q4

REPORT INFORMATION
  Report Type: Spontaneous
  Country: DE (occurrence: DE)
  Receive Date: 20230322
  Receipt Date: 20231220
  Transmission Date: 20240109
  Serious: Yes (Hospitalization, Other)
  Sender: FDA-Public Use
  Company Number: DE-ROCHE-3297406

PATIENT
  Age: 60 Year
  Sex: Male
  Weight: 80 kg

DRUGS (20)
  1. BEVACIZUMAB [Suspect]
     Active Substance: BEVACIZUMAB
     Dosage: 637.5 MG, EVERY 3 WEEKS
     Route: 042
     Dates: start: 20220622, end: 20230126
  2. BEVACIZUMAB [Suspect]
     Active Substance: BEVACIZUMAB
     Dosage: 637.5 MG, EVERY 3 WEEKS
     Route: 042
     Dates: start: 20230105
  3. LEUCOVORIN CALCIUM [Suspect]
     Active Substance: LEUCOVORIN CALCIUM
     Indication: Neoplasm malignant
     Dosage: 2X/WEEK
     Route: 042
     Dates: start: 20230301
  4. LEUCOVORIN CALCIUM [Suspect]
     Active Substance: LEUCOVORIN CALCIUM
     Dosage: 840 MG
     Route: 042
     Dates: start: 20230418, end: 20230418
  5. LEUCOVORIN [Suspect]
     Active Substance: LEUCOVORIN\LEUCOVORIN CALCIUM
     Dosage: EVERY 2 WEEKS
     Route: 042
     Dates: start: 20230301, end: 20230418
  6. CAPECITABINE [Suspect]
     Active Substance: CAPECITABINE
     Dosage: 1000 MG, 2X/DAY
     Route: 048
     Dates: start: 20220622, end: 20230126
  7. CAPECITABINE [Suspect]
     Active Substance: CAPECITABINE
     Dosage: 1000 MG, 2X/DAY
     Route: 048
     Dates: start: 20230105
  8. AFLIBERCEPT [Suspect]
     Active Substance: AFLIBERCEPT
     Indication: Neoplasm malignant
     Dosage: 2X/WEEK
     Route: 042
     Dates: start: 20230301
  9. AFLIBERCEPT [Suspect]
     Active Substance: AFLIBERCEPT
     Dosage: 336 MG
     Route: 042
     Dates: start: 20230418
  10. IRINOTECAN HYDROCHLORIDE [Suspect]
     Active Substance: IRINOTECAN HYDROCHLORIDE
     Indication: Neoplasm malignant
     Dosage: 2X/WEEK
     Route: 042
     Dates: start: 20230301
  11. IRINOTECAN HYDROCHLORIDE [Suspect]
     Active Substance: IRINOTECAN HYDROCHLORIDE
     Dosage: 238.5 MG
     Route: 042
     Dates: start: 20230418
  12. FLUOROURACIL [Suspect]
     Active Substance: FLUOROURACIL
     Indication: Neoplasm malignant
     Dosage: 2X/WEEK
     Route: 042
     Dates: start: 20230301
  13. FLUOROURACIL [Suspect]
     Active Substance: FLUOROURACIL
     Dosage: 3780 MG
     Route: 042
     Dates: start: 20230418
  14. LOPERAMIDE [Concomitant]
     Active Substance: LOPERAMIDE
     Dosage: 2 MG, AS NEEDED
     Dates: start: 20220615
  15. METOCLOPRAMIDE [Concomitant]
     Active Substance: METOCLOPRAMIDE
     Dosage: 10 MG, 2X/DAY (1-0-1)
     Dates: start: 20220316
  16. CHOLECALCIFEROL [Concomitant]
     Active Substance: CHOLECALCIFEROL
     Dosage: 20000 IU, 1X/WEEK
     Dates: start: 20211223
  17. VITAMIN B6 [Concomitant]
     Active Substance: PYRIDOXINE HYDROCHLORIDE
     Dosage: UNK
     Dates: start: 20211223
  18. CYANOCOBALAMIN [Concomitant]
     Active Substance: CYANOCOBALAMIN
     Dosage: UNK
     Dates: start: 20211223
  19. SELENIUM [Concomitant]
     Active Substance: SELENIUM
     Dosage: 100 MG, 1X/DAY
     Dates: start: 20220316
  20. ONDANSETRON [Concomitant]
     Active Substance: ONDANSETRON
     Dosage: 8 MG, AS NEEDED
     Dates: start: 20220316

REACTIONS (2)
  - Cholecystitis [Recovered/Resolved]
  - Cholecystitis [Recovered/Resolved]

NARRATIVE: CASE EVENT DATE: 20230110
